FAERS Safety Report 10540778 (Version 2)
Quarter: 2014Q4

REPORT INFORMATION
  Report Type: Spontaneous
  Country: US (occurrence: US)
  Receive Date: 20141024
  Receipt Date: 20141110
  Transmission Date: 20150529
  Serious: No
  Sender: FDA-Public Use
  Company Number: US-009507513-1410USA010013

PATIENT
  Age: 25 Year
  Sex: Female
  Weight: 113.38 kg

DRUGS (1)
  1. NEXPLANON [Suspect]
     Active Substance: ETONOGESTREL
     Indication: CONTRACEPTION
     Dosage: IN THE LEFT ARM
     Route: 059
     Dates: start: 20130618

REACTIONS (3)
  - Pain [Unknown]
  - Acne [Unknown]
  - Product quality issue [Unknown]

NARRATIVE: CASE EVENT DATE: 20130618
